FAERS Safety Report 10289548 (Version 1)
Quarter: 2014Q3

REPORT INFORMATION
  Report Type: Spontaneous
  Country: US (occurrence: None)
  Receive Date: 20140707
  Receipt Date: 20140707
  Transmission Date: 20150326
  Serious: Yes (Other)
  Sender: FDA-Public Use
  Company Number: None

PATIENT
  Age: 68 Year
  Sex: Female
  Weight: 77.57 kg

DRUGS (1)
  1. GLUCOPHAGE [Suspect]
     Active Substance: METFORMIN HYDROCHLORIDE
     Indication: TYPE 2 DIABETES MELLITUS
     Dosage: 2 TABLETS, TWICE DAILY, TAKEN BY MOUTH?
     Route: 048

REACTIONS (8)
  - Diarrhoea [None]
  - Lactic acidosis [None]
  - Feeling cold [None]
  - Peripheral coldness [None]
  - Confusional state [None]
  - Fatigue [None]
  - Drug effect decreased [None]
  - Feeling abnormal [None]

NARRATIVE: CASE EVENT DATE: 20100510
